FAERS Safety Report 14935056 (Version 2)
Quarter: 2018Q2

REPORT INFORMATION
  Report Type: Spontaneous
  Country: US (occurrence: US)
  Receive Date: 20180524
  Receipt Date: 20180530
  Transmission Date: 20180711
  Serious: No
  Sender: FDA-Public Use
  Company Number: US-PFIZER INC-2018212776

PATIENT
  Age: 45 Year

DRUGS (1)
  1. CHANTIX [Suspect]
     Active Substance: VARENICLINE TARTRATE
     Dosage: UNK (TWO ROUNDS OF CHANTIX)

REACTIONS (3)
  - Drug dose omission [Unknown]
  - Memory impairment [Unknown]
  - Drug ineffective [Unknown]
